FAERS Safety Report 9434180 (Version 1)
Quarter: 2013Q3

REPORT INFORMATION
  Report Type: Spontaneous
  Country: ES (occurrence: ES)
  Receive Date: 20130801
  Receipt Date: 20130801
  Transmission Date: 20140515
  Serious: Yes (Hospitalization, Other)
  Sender: FDA-Public Use
  Company Number: ES-BRISTOL-MYERS SQUIBB COMPANY-19128818

PATIENT
  Age: 72 Year
  Sex: Male

DRUGS (7)
  1. MITOMYCIN-C [Suspect]
     Indication: NEOPLASM
     Dosage: INJECTION
     Route: 043
     Dates: start: 20130606, end: 20130607
  2. CLEXANE [Concomitant]
     Dosage: INJ
     Dates: start: 20130606, end: 20130619
  3. OMEPRAZOLE [Concomitant]
     Dosage: INJ
     Dates: start: 20130605, end: 20130624
  4. SEGURIL [Concomitant]
     Dosage: INJ
     Dates: start: 20130605, end: 20130616
  5. AUGMENTIN [Concomitant]
     Dosage: INJ
     Dates: start: 20130605, end: 20130616
  6. PARACETAMOL [Concomitant]
     Dosage: INJ
     Dates: start: 20130605, end: 20130616
  7. ENANTYUM [Concomitant]
     Dosage: INJ
     Dates: start: 20130605, end: 20130613

REACTIONS (2)
  - Thrombocytopenia [Recovered/Resolved]
  - Neutropenia [Recovered/Resolved]
